FAERS Safety Report 4940644-1 (Version None)
Quarter: 2006Q1

REPORT INFORMATION
  Report Type: 
  Country: None (occurrence: None)
  Receive Date: 20060206
  Receipt Date: 20050322
  Transmission Date: 20060701
  Serious: Yes (Hospitalization)
  Sender: FDA-Public Use
  Company Number: MEDI-0002989

PATIENT
  Age: 55 Year
  Sex: Male
  Weight: 86.1834 kg

DRUGS (5)
  1. ETHYOL [Suspect]
     Indication: RADIOTHERAPY
     Dosage: SUBCUTANEOUS
     Route: 058
     Dates: start: 20041221, end: 20050104
  2. RADIATION THERAPY [Concomitant]
  3. DURAGESIC-100 [Concomitant]
  4. SYNTHROID [Concomitant]
  5. MULTIVITAMIN [Concomitant]

REACTIONS (5)
  - CHILLS [None]
  - HYPOTENSION [None]
  - NAUSEA [None]
  - PYREXIA [None]
  - RASH [None]
